FAERS Safety Report 18250959 (Version 1)
Quarter: 2020Q3

REPORT INFORMATION
  Report Type: Spontaneous
  Country: CA (occurrence: CA)
  Receive Date: 20200910
  Receipt Date: 20200910
  Transmission Date: 20201103
  Serious: Yes (Other)
  Sender: FDA-Public Use
  Company Number: CA-TEVA-2020-CA-1825668

PATIENT
  Sex: Female

DRUGS (4)
  1. HYDROXYCHLOROQUINE SULFATE. [Suspect]
     Active Substance: HYDROXYCHLOROQUINE SULFATE
     Route: 065
  2. METHOTREXATE. [Suspect]
     Active Substance: METHOTREXATE
     Route: 048
  3. METHOTREXATE. [Suspect]
     Active Substance: METHOTREXATE
     Route: 058
  4. SULFASALAZINE. [Suspect]
     Active Substance: SULFASALAZINE
     Route: 065

REACTIONS (9)
  - Red blood cell sedimentation rate increased [Unknown]
  - Palmoplantar pustulosis [Unknown]
  - Presyncope [Unknown]
  - Drug ineffective [Unknown]
  - Orthostatic hypotension [Unknown]
  - Retinopathy [Unknown]
  - Drug intolerance [Unknown]
  - Rash [Unknown]
  - C-reactive protein increased [Unknown]
